FAERS Safety Report 9734445 (Version 2)
Quarter: 2013Q4

REPORT INFORMATION
  Report Type: Spontaneous
  Country: JP (occurrence: JP)
  Receive Date: 20131206
  Receipt Date: 20131206
  Transmission Date: 20140711
  Serious: Yes (Other)
  Sender: FDA-Public Use
  Company Number: JP-BEH-2010022095

PATIENT
  Age: 69 Year
  Sex: Female
  Weight: 49 kg

DRUGS (39)
  1. ALBUMINAR-5 [Suspect]
     Indication: PLASMAPHERESIS
     Route: 042
     Dates: start: 20100126, end: 20100126
  2. ALBUMINAR-5 [Suspect]
     Route: 042
     Dates: start: 20100129, end: 20100129
  3. ALBUMINAR-5 [Suspect]
     Route: 042
     Dates: start: 20100201, end: 20100201
  4. ALBUMINAR-5 [Suspect]
     Route: 042
     Dates: start: 20100205, end: 20100205
  5. ALBUMINAR-5 [Suspect]
     Indication: PEMPHIGOID
     Route: 042
     Dates: start: 20100209, end: 20100209
  6. ALBUMINAR-5 [Suspect]
     Route: 042
     Dates: start: 20100212, end: 20100212
  7. ALBUMINAR-5 [Suspect]
     Route: 042
     Dates: start: 20100216, end: 20100216
  8. SEKIJUJI ALBUMIN 20% [Suspect]
     Indication: PEMPHIGOID
     Dosage: 10 G / 50 ML
     Route: 042
     Dates: start: 20100126, end: 20100126
  9. SEKIJUJI ALBUMIN 20% [Suspect]
     Indication: PLASMAPHERESIS
     Dosage: 10 G / 50 ML
     Route: 042
     Dates: start: 20100129, end: 20100129
  10. SEKIJUJI ALBUMIN 20% [Suspect]
     Dosage: 10 G / 50 ML
     Route: 042
     Dates: start: 20100201, end: 20100201
  11. SEKIJUJI ALBUMIN 20% [Suspect]
     Dosage: 10 G / 50 ML
     Route: 042
     Dates: start: 20100205, end: 20100205
  12. SEKIJUJI ALBUMIN 20% [Suspect]
     Dosage: 10 G / 50 ML
     Route: 042
     Dates: start: 20100209, end: 20100209
  13. SEKIJUJI ALBUMIN 20% [Suspect]
     Dosage: 10 G / 50 ML
     Route: 042
     Dates: start: 20100212, end: 20100212
  14. SEKIJUJI ALBUMIN 20% [Suspect]
     Dosage: 10 G / 50 ML
     Route: 042
     Dates: start: 20100216, end: 20100216
  15. IRRADIATED RED CELL CONCENTRATES [Concomitant]
     Route: 042
     Dates: start: 20100130, end: 20100130
  16. IRRADIATED RED CELL CONCENTRATES [Concomitant]
     Route: 042
     Dates: start: 20100131, end: 20100131
  17. FRESH FROZEN PLASMA [Concomitant]
     Route: 042
     Dates: start: 20100210, end: 20100210
  18. NAOTAMIN [Concomitant]
     Dosage: 30 MG/ H
     Dates: start: 20100126, end: 20100126
  19. NAOTAMIN [Concomitant]
     Dosage: 30 MG/H
     Dates: start: 20100129, end: 20100129
  20. NAOTAMIN [Concomitant]
     Dosage: 30 MG/H
     Dates: start: 20100201, end: 20100201
  21. NAOTAMIN [Concomitant]
     Dosage: 30 MG/H
     Dates: start: 20100205, end: 20100205
  22. NAOTAMIN [Concomitant]
     Dosage: 30 MG/H
     Dates: start: 20100209, end: 20100209
  23. NAOTAMIN [Concomitant]
     Dosage: 30 MG/H
     Dates: start: 20100212, end: 20100212
  24. LOWHEPA [Concomitant]
     Dosage: 400 U/H
     Dates: start: 20100216, end: 20100216
  25. PREDONINE [Concomitant]
     Dates: start: 20100207, end: 20100207
  26. PREDONINE [Concomitant]
     Dates: start: 20100208, end: 20100214
  27. PREDONINE [Concomitant]
     Dates: start: 20100215
  28. THYRADIN-S [Concomitant]
     Dosage: 37.5 MCG
  29. NICOTINAMIDE [Concomitant]
     Dosage: POWDER 10%; 1500 MG
  30. VIBRAMYCIN [Concomitant]
     Dosage: 200 MG
  31. BAKTAR [Concomitant]
     Dosage: 1 TABLET
  32. ZYRTEC [Concomitant]
     Dosage: 1 TABLET
  33. MYSLEE [Concomitant]
     Dosage: 1 TABLET
  34. GASTER D [Concomitant]
     Dosage: 2 TABLETS
  35. BONALON [Concomitant]
     Dosage: 1 TABLET
  36. ISCOTIN [Concomitant]
     Dosage: 3 TABLETS
  37. WARFARIN [Concomitant]
     Dosage: 3 TABLETS
  38. ASPARA POTASSIUM [Concomitant]
     Dosage: 1500 MG; POWDER
  39. PAXIL [Concomitant]
     Dosage: 1 TABLET

REACTIONS (6)
  - Loss of consciousness [Recovered/Resolved]
  - Pyrexia [Recovered/Resolved]
  - Blood pressure decreased [Recovered/Resolved]
  - Feeling abnormal [Recovered/Resolved]
  - Chills [Recovered/Resolved]
  - Nausea [Recovered/Resolved]
